FAERS Safety Report 6393110-3 (Version None)
Quarter: 2009Q4

REPORT INFORMATION
  Report Type: 
  Country: None (occurrence: None)
  Receive Date: 20091008
  Receipt Date: 20091006
  Transmission Date: 20100525
  Serious: Yes (Other)
  Sender: FDA-Public Use
  Company Number: US-TEVA-207727USA

PATIENT

DRUGS (4)
  1. LEUCOVORIN CALCIUM TABLET 5MG [Suspect]
  2. OXALIPLATIN [Suspect]
  3. FLUOROURACIL [Suspect]
  4. CAPECITABINE [Suspect]

REACTIONS (1)
  - BLINDNESS TRANSIENT [None]
